FAERS Safety Report 25171275 (Version 1)
Quarter: 2025Q2

REPORT INFORMATION
  Report Type: Report from Study
  Country: SG (occurrence: SG)
  Receive Date: 20250408
  Receipt Date: 20250408
  Transmission Date: 20250716
  Serious: No
  Sender: KARYOPHARM THERAPEUTICS
  Company Number: SG-ANTENGENE-20250403083

PATIENT

DRUGS (2)
  1. SELINEXOR [Suspect]
     Active Substance: SELINEXOR
     Indication: Dedifferentiated liposarcoma
  2. BORTEZOMIB [Concomitant]
     Active Substance: BORTEZOMIB

REACTIONS (2)
  - Dedifferentiated liposarcoma [Unknown]
  - Off label use [Unknown]
